FAERS Safety Report 24281270 (Version 2)
Quarter: 2025Q3

REPORT INFORMATION
  Report Type: Other
  Country: CA (occurrence: CA)
  Receive Date: 20240904
  Receipt Date: 20250728
  Transmission Date: 20251021
  Serious: Yes (Other)
  Sender: APOTEX
  Company Number: CA-APOTEX-2024AP010026

PATIENT
  Age: 68 Year
  Sex: Male

DRUGS (6)
  1. METFORMIN [Suspect]
     Active Substance: METFORMIN HYDROCHLORIDE
     Indication: Product used for unknown indication
     Route: 065
  2. XTANDI [Suspect]
     Active Substance: ENZALUTAMIDE
     Indication: Prostatic specific antigen increased
     Route: 065
  3. XTANDI [Suspect]
     Active Substance: ENZALUTAMIDE
     Route: 065
  4. ELIGARD [Suspect]
     Active Substance: LEUPROLIDE ACETATE
     Indication: Prostate cancer
     Route: 058
  5. ELIGARD [Suspect]
     Active Substance: LEUPROLIDE ACETATE
     Route: 058
  6. ELIGARD [Suspect]
     Active Substance: LEUPROLIDE ACETATE
     Route: 058

REACTIONS (6)
  - Blood pressure fluctuation [Not Recovered/Not Resolved]
  - Hot flush [Not Recovered/Not Resolved]
  - Hypertension [Not Recovered/Not Resolved]
  - Injection site mass [Not Recovered/Not Resolved]
  - Prostatic specific antigen increased [Not Recovered/Not Resolved]
  - Weight decreased [Not Recovered/Not Resolved]
